FAERS Safety Report 9019718 (Version 2)
Quarter: 2013Q1

REPORT INFORMATION
  Report Type: Spontaneous
  Country: US (occurrence: US)
  Receive Date: 20130118
  Receipt Date: 20130124
  Transmission Date: 20140127
  Serious: Yes (Other)
  Sender: FDA-Public Use
  Company Number: US-TEVA-381059USA

PATIENT
  Sex: Female

DRUGS (3)
  1. PROAIR HFA [Suspect]
     Indication: ASTHMA
     Dosage: DAILY DOSE: VARIES
     Route: 055
     Dates: start: 20121206
  2. PROAIR HFA [Suspect]
     Indication: BRONCHITIS
  3. CARBAMAZEPINE [Concomitant]
     Indication: EPILEPSY
     Dosage: 800 MILLIGRAM DAILY; 200 MG X 2
     Route: 048

REACTIONS (1)
  - Convulsion [Recovered/Resolved]
